FAERS Safety Report 9013378 (Version 2)
Quarter: 2013Q1

REPORT INFORMATION
  Report Type: Spontaneous
  Country: US (occurrence: US)
  Receive Date: 20130114
  Receipt Date: 20130205
  Transmission Date: 20140127
  Serious: Yes (Death)
  Sender: FDA-Public Use
  Company Number: US-JNJFOC-20130104844

PATIENT
  Age: 59 Year
  Sex: Female

DRUGS (4)
  1. TRAMADOL [Suspect]
     Indication: SUICIDE ATTEMPT
     Route: 048
  2. BUPROPION [Suspect]
     Indication: SUICIDE ATTEMPT
     Route: 048
  3. OXYCODONE [Suspect]
     Indication: SUICIDE ATTEMPT
     Route: 048
  4. TRAZODONE [Suspect]
     Indication: SUICIDE ATTEMPT
     Route: 048

REACTIONS (1)
  - Toxicity to various agents [Fatal]
